FAERS Safety Report 8598014-3 (Version None)
Quarter: 2012Q3

REPORT INFORMATION
  Report Type: 
  Country: None (occurrence: None)
  Receive Date: 20120816
  Receipt Date: 20120813
  Transmission Date: 20120928
  Serious: Yes (Other)
  Sender: FDA-Public Use
  Company Number: FR-BRISTOL-MYERS SQUIBB COMPANY-16830523

PATIENT
  Sex: Female

DRUGS (3)
  1. REYATAZ [Suspect]
     Indication: HIV INFECTION
     Route: 048
     Dates: start: 20120124
  2. NORVIR [Suspect]
     Indication: HIV INFECTION
     Dosage: 1 FILM COATED TABLET DAILY
     Route: 048
     Dates: start: 20120124
  3. TRUVADA [Suspect]
     Indication: HIV INFECTION
     Route: 048
     Dates: start: 20110124

REACTIONS (3)
  - OLIGOHYDRAMNIOS [None]
  - ABORTION INDUCED [None]
  - PREGNANCY [None]
